FAERS Safety Report 5588914-0 (Version None)
Quarter: 2008Q1

REPORT INFORMATION
  Report Type: 
  Country: None (occurrence: None)
  Receive Date: 20080111
  Receipt Date: 20080103
  Transmission Date: 20080703
  Serious: Yes (Other)
  Sender: FDA-Public Use
  Company Number: US-ABBOTT-08P-163-0432361-00

PATIENT
  Sex: Female
  Weight: 113 kg

DRUGS (8)
  1. HUMIRA [Suspect]
     Indication: RHEUMATOID ARTHRITIS
     Route: 058
     Dates: start: 20040101, end: 20071106
  2. HUMIRA [Suspect]
     Route: 058
     Dates: start: 20071222, end: 20080103
  3. CIPROFLOXACIN [Concomitant]
     Indication: PROPHYLAXIS
     Route: 048
     Dates: start: 20071218, end: 20071220
  4. CIPROFLOXACIN [Concomitant]
     Indication: SURGERY
  5. HYDROXYCHLOROQUINE PHOSPHATE [Concomitant]
     Indication: RHEUMATOID ARTHRITIS
  6. SULFASALAZINE [Concomitant]
     Indication: RHEUMATOID ARTHRITIS
  7. FOLIC ACID [Concomitant]
     Indication: RHEUMATOID ARTHRITIS
  8. METHOTREXATE [Concomitant]
     Indication: RHEUMATOID ARTHRITIS

REACTIONS (4)
  - CARPAL TUNNEL SYNDROME [None]
  - OEDEMA PERIPHERAL [None]
  - PRURITUS [None]
  - WOUND DRAINAGE [None]
